FAERS Safety Report 8153476 (Version 7)
Quarter: 2013Q4

REPORT INFORMATION
  Report Type: Report from Study
  Country: US (occurrence: US)
  Receive Date: 20110923
  Receipt Date: 20131021
  Transmission Date: 20140711
  Serious: Yes (Hospitalization)
  Sender: FDA-Public Use
  Company Number: US-JNJFOC-20110906956

PATIENT
  Age: 16 Year
  Sex: Male
  Weight: 52.7 kg

DRUGS (6)
  1. REMICADE [Suspect]
     Indication: CROHN^S DISEASE
     Route: 042
     Dates: start: 20071101, end: 20080730
  2. PREDNISONE [Concomitant]
     Route: 065
  3. ASACOL [Concomitant]
     Route: 065
  4. CALCIUM W/IRON [Concomitant]
     Route: 065
  5. MULTIVITAMIN WITH MINERAL [Concomitant]
     Route: 065
  6. 6-MERCAPTOPURINE [Concomitant]
     Route: 065

REACTIONS (1)
  - Crohn^s disease [Recovered/Resolved]
